FAERS Safety Report 19429538 (Version 3)
Quarter: 2021Q2

REPORT INFORMATION
  Report Type: Spontaneous
  Country: US (occurrence: US)
  Receive Date: 20210617
  Receipt Date: 20210628
  Transmission Date: 20210717
  Serious: Yes (Other)
  Sender: FDA-Public Use
  Company Number: US-GLAXOSMITHKLINE-US2021AMR127784

PATIENT
  Sex: Female

DRUGS (1)
  1. ZEJULA [Suspect]
     Active Substance: NIRAPARIB
     Indication: PRODUCT USED FOR UNKNOWN INDICATION
     Dosage: 300 MG, QD
     Dates: start: 20210529

REACTIONS (7)
  - Insomnia [Unknown]
  - Vomiting [Unknown]
  - Full blood count decreased [Unknown]
  - Drug monitoring procedure not performed [Unknown]
  - Renal impairment [Unknown]
  - Blood pressure increased [Unknown]
  - Fatigue [Unknown]
